FAERS Safety Report 24752406 (Version 1)
Quarter: 2024Q4

REPORT INFORMATION
  Report Type: Spontaneous
  Country: US (occurrence: None)
  Receive Date: 20241219
  Receipt Date: 20241219
  Transmission Date: 20250114
  Serious: Yes (Other)
  Sender: ADIENNE PHARMA & BIOTECH
  Company Number: US-ADIENNEP-2024AD001022

PATIENT
  Sex: Female

DRUGS (10)
  1. THIOTEPA [Suspect]
     Active Substance: THIOTEPA
     Indication: Autologous haematopoietic stem cell transplant
  2. CARBOPLATIN [Suspect]
     Active Substance: CARBOPLATIN
     Indication: Autologous haematopoietic stem cell transplant
  3. VINCRISTINE [Suspect]
     Active Substance: VINCRISTINE
     Indication: Chemotherapy
  4. CISPLATIN [Suspect]
     Active Substance: CISPLATIN
     Indication: Chemotherapy
  5. ETOPOSIDE [Suspect]
     Active Substance: ETOPOSIDE
     Indication: Chemotherapy
  6. CYCLOPHOSPHAMIDE [Suspect]
     Active Substance: CYCLOPHOSPHAMIDE
     Indication: Chemotherapy
  7. METHOTREXATE [Suspect]
     Active Substance: METHOTREXATE
     Indication: Chemotherapy
  8. TOPOTECAN [Suspect]
     Active Substance: TOPOTECAN HYDROCHLORIDE
     Dosage: EVERY FOUR WEEKS FOR 12 DOSES ()
     Route: 037
  9. VORINOSTAT [Suspect]
     Active Substance: VORINOSTAT
     Dosage: 100MG PO QD
     Route: 048
  10. ISOTRETINOIN [Suspect]
     Active Substance: ISOTRETINOIN
     Dosage: 80MG/M2 DIVIDED BID

REACTIONS (5)
  - Mucosal inflammation [Unknown]
  - Febrile neutropenia [Unknown]
  - Pseudomonal sepsis [Unknown]
  - Respiratory arrest [Unknown]
  - Epistaxis [Unknown]
